FAERS Safety Report 16078326 (Version 1)
Quarter: 2019Q1

REPORT INFORMATION
  Report Type: Spontaneous
  Country: US (occurrence: US)
  Receive Date: 20190315
  Receipt Date: 20190315
  Transmission Date: 20190418
  Serious: No
  Sender: FDA-Public Use
  Company Number: US-SA-2019SA068954

PATIENT
  Sex: Female

DRUGS (1)
  1. DUPIXENT [Suspect]
     Active Substance: DUPILUMAB
     Indication: ASTHMA
     Dosage: 300 MG
     Dates: start: 20190221

REACTIONS (4)
  - Injection site pain [Recovered/Resolved]
  - Injection site oedema [Recovered/Resolved]
  - Injection site irritation [Recovered/Resolved]
  - Injection site exfoliation [Recovered/Resolved]
